FAERS Safety Report 15029145 (Version 1)
Quarter: 2018Q2

REPORT INFORMATION
  Report Type: Spontaneous
  Country: None (occurrence: CO)
  Receive Date: 20180619
  Receipt Date: 20180619
  Transmission Date: 20180711
  Serious: Yes (Other)
  Sender: FDA-Public Use
  Company Number: CO-POPULATION COUNCIL, INC.-2049618

PATIENT
  Age: 18 Year
  Sex: Female
  Weight: 45 kg

DRUGS (1)
  1. JADELLE [Suspect]
     Active Substance: LEVONORGESTREL
     Indication: CONTRACEPTION
     Route: 059
     Dates: start: 20170307, end: 20180504

REACTIONS (2)
  - Genital haemorrhage [Not Recovered/Not Resolved]
  - Congenital skin disorder [Not Recovered/Not Resolved]

NARRATIVE: CASE EVENT DATE: 20171212
